FAERS Safety Report 7706373-6 (Version None)
Quarter: 2011Q3

REPORT INFORMATION
  Report Type: 
  Country: None (occurrence: None)
  Receive Date: 20110824
  Receipt Date: 20110822
  Transmission Date: 20111222
  Serious: Yes (Hospitalization, Other)
  Sender: FDA-Public Use
  Company Number: AU-PFIZER INC-2011193099

PATIENT
  Sex: Female

DRUGS (3)
  1. ZOLOFT [Suspect]
     Indication: OBSESSIVE-COMPULSIVE DISORDER
  2. XELODA [Suspect]
     Dosage: UNK
  3. ZOLOFT [Suspect]
     Indication: DEPRESSION
     Dosage: 200 MG, 1X/DAY
     Dates: start: 20020101

REACTIONS (4)
  - OBSESSIVE-COMPULSIVE DISORDER [None]
  - BONE NEOPLASM MALIGNANT [None]
  - DEPRESSION [None]
  - RENAL FAILURE [None]
